FAERS Safety Report 7904758-6 (Version None)
Quarter: 2011Q4

REPORT INFORMATION
  Report Type: 
  Country: None (occurrence: None)
  Receive Date: 20111109
  Receipt Date: 20111031
  Transmission Date: 20120403
  Serious: Yes (Hospitalization, Other)
  Sender: FDA-Public Use
  Company Number: US-BAYER-2011-048338

PATIENT
  Age: 18 Year
  Sex: Female
  Weight: 81.633 kg

DRUGS (2)
  1. MOTRIN [Concomitant]
  2. DROSPIRENONE AND ETHINYL ESTRADIOL [Suspect]
     Dosage: UNK
     Dates: start: 20090101, end: 20100101

REACTIONS (4)
  - CHOLECYSTITIS CHRONIC [None]
  - INJURY [None]
  - GALLBLADDER DISORDER [None]
  - PAIN [None]
